FAERS Safety Report 26028117 (Version 1)
Quarter: 2025Q4

REPORT INFORMATION
  Report Type: Other
  Country: CN (occurrence: CN)
  Receive Date: 20251111
  Receipt Date: 20251111
  Transmission Date: 20260118
  Serious: Yes (Other)
  Sender: INCYTE
  Company Number: CN-002147023-NVSC2025CN169542

PATIENT
  Age: 71 Year
  Weight: 60 kg

DRUGS (2)
  1. RUXOLITINIB [Suspect]
     Active Substance: RUXOLITINIB
     Indication: Haemophagocytic lymphohistiocytosis
     Dosage: 5 MG, BID
  2. LECITHIN [Suspect]
     Active Substance: LECITHIN
     Indication: Drug therapy
     Dosage: 456 MG, TID

REACTIONS (2)
  - Liver injury [Unknown]
  - Off label use [Unknown]
